FAERS Safety Report 9519009 (Version 1)
Quarter: 2013Q3

REPORT INFORMATION
  Report Type: Spontaneous
  Country: GB (occurrence: GB)
  Receive Date: 20130912
  Receipt Date: 20130912
  Transmission Date: 20140515
  Serious: Yes (Other)
  Sender: FDA-Public Use
  Company Number: GB-PFIZER INC-2013259270

PATIENT
  Age: 69 Year
  Sex: Female

DRUGS (2)
  1. AZITHROMYCIN [Suspect]
     Dosage: UNK
  2. ORENCIA [Suspect]
     Dosage: 125 MG, WEEKLY

REACTIONS (1)
  - Cellulitis [Unknown]
